FAERS Safety Report 8063206-9 (Version None)
Quarter: 2012Q1

REPORT INFORMATION
  Report Type: 
  Country: None (occurrence: None)
  Receive Date: 20120123
  Receipt Date: 20120119
  Transmission Date: 20120608
  Serious: Yes (Death, Other)
  Sender: FDA-Public Use
  Company Number: PHHY2012AT005074

PATIENT
  Sex: Female

DRUGS (3)
  1. ZOLEDRONOC ACID [Suspect]
     Route: 042
  2. ZOLEDRONOC ACID [Suspect]
     Route: 042
  3. ZOLEDRONOC ACID [Suspect]
     Route: 042

REACTIONS (3)
  - INAPPROPRIATE SCHEDULE OF DRUG ADMINISTRATION [None]
  - RENAL FAILURE [None]
  - DEATH [None]
